FAERS Safety Report 9515501 (Version 2)
Quarter: 2013Q3

REPORT INFORMATION
  Report Type: Spontaneous
  Country: GB (occurrence: GB)
  Receive Date: 20130911
  Receipt Date: 20130911
  Transmission Date: 20140515
  Serious: Yes (Other)
  Sender: FDA-Public Use
  Company Number: PHFR2013GB001385

PATIENT
  Age: 42 Year
  Sex: Female

DRUGS (9)
  1. CLOZARIL [Suspect]
     Dosage: 350 MG, DAILY
     Route: 048
     Dates: start: 20080128
  2. INSULIN [Concomitant]
     Indication: DIABETES MELLITUS
     Dosage: UNK
     Route: 058
  3. THYROXINE [Concomitant]
     Indication: HYPOTHYROIDISM
     Dosage: UNK
     Route: 048
  4. LANSOPRAZOLE [Concomitant]
     Indication: DYSPEPSIA
     Dosage: 30 MG, UNK
     Route: 048
  5. HYOSCINE [Concomitant]
     Indication: SALIVARY HYPERSECRETION
     Dosage: UNK DAILY
     Route: 048
  6. CITALOPRAM [Concomitant]
     Indication: DEPRESSION
     Dosage: 40 MG, UNK
     Route: 048
  7. MIRTAZAPINE [Concomitant]
     Indication: DEPRESSION
     Dosage: 45 MG, UNK
     Route: 048
  8. METFORMINE [Concomitant]
     Indication: DIABETES MELLITUS
     Dosage: UNK
     Route: 048
  9. ZOPICLONE [Concomitant]
     Indication: INSOMNIA
     Dosage: 7.5 MG, UNK
     Route: 048

REACTIONS (4)
  - Haemoglobin decreased [Not Recovered/Not Resolved]
  - Blood alkaline phosphatase increased [Unknown]
  - Blood cholesterol increased [Unknown]
  - Blood glucose increased [Unknown]
